FAERS Safety Report 23398587 (Version 1)
Quarter: 2024Q1

REPORT INFORMATION
  Report Type: Spontaneous
  Country: US (occurrence: US)
  Receive Date: 20240112
  Receipt Date: 20240112
  Transmission Date: 20240410
  Serious: No
  Sender: FDA-Public Use
  Company Number: US-PERRIGO-23US006623

PATIENT
  Age: 19 Year
  Sex: Male
  Weight: 65.76 kg

DRUGS (3)
  1. IBUPROFEN [Suspect]
     Active Substance: IBUPROFEN
     Indication: Pain
     Dosage: 400 MG, QAM, PRN
     Route: 048
     Dates: start: 2015
  2. IBUPROFEN [Suspect]
     Active Substance: IBUPROFEN
     Dosage: 1 TO 2 ADDITIONAL TABLETS, HS, PRN
     Route: 048
     Dates: start: 2015
  3. IBUPROFEN [Suspect]
     Active Substance: IBUPROFEN
     Dosage: 800 MG, SINGLE
     Route: 048
     Dates: start: 20230530, end: 20230530

REACTIONS (1)
  - Incorrect dose administered [Unknown]

NARRATIVE: CASE EVENT DATE: 20230530
